FAERS Safety Report 21706761 (Version 2)
Quarter: 2023Q1

REPORT INFORMATION
  Report Type: Spontaneous
  Country: IT (occurrence: IT)
  Receive Date: 20221209
  Receipt Date: 20230315
  Transmission Date: 20230418
  Serious: Yes (Other)
  Sender: FDA-Public Use
  Company Number: None

PATIENT
  Age: 1 Day
  Sex: Male
  Weight: 3 kg

DRUGS (1)
  1. PROSTIN [Suspect]
     Active Substance: ALPROSTADIL
     Dosage: UNK, 0.05 MCG/KG/MIN
     Route: 042
     Dates: start: 20221128, end: 20221129

REACTIONS (2)
  - Fever neonatal [Recovered/Resolved]
  - Rash neonatal [Recovered/Resolved]

NARRATIVE: CASE EVENT DATE: 20221129
